FAERS Safety Report 22593737 (Version 1)
Quarter: 2023Q2

REPORT INFORMATION
  Report Type: Spontaneous
  Country: US (occurrence: US)
  Receive Date: 20230613
  Receipt Date: 20230613
  Transmission Date: 20230721
  Serious: Yes (Other)
  Sender: FDA-Public Use
  Company Number: US-AVET LIFESCIENCES LTD-2023-AVET-000151

PATIENT
  Age: 68 Year
  Sex: Female

DRUGS (1)
  1. TRANEXAMIC ACID [Suspect]
     Active Substance: TRANEXAMIC ACID
     Indication: Procedural haemorrhage
     Dosage: 1000 MG/10ML TXA VIAL AND DILUTE IT TO A TOTAL VOLUME OF 40ML; RESULTING IN A CONCENTRATION OF 25 MG
     Route: 065

REACTIONS (1)
  - Wound complication [Recovering/Resolving]
